FAERS Safety Report 20431538 (Version 1)
Quarter: 2022Q1

REPORT INFORMATION
  Report Type: Report from Study
  Country: US (occurrence: US)
  Receive Date: 20220204
  Receipt Date: 20220204
  Transmission Date: 20220423
  Serious: Yes (Life-Threatening, Hospitalization)
  Sender: FDA-Public Use
  Company Number: None

PATIENT

DRUGS (11)
  1. ONCASPAR [Suspect]
     Active Substance: PEGASPARGASE
     Indication: Acute lymphocytic leukaemia
     Dosage: 5500 IU/M?
     Route: 042
     Dates: start: 20200213, end: 20200213
  2. RUXOLITINIB [Suspect]
     Active Substance: RUXOLITINIB
     Indication: Acute lymphocytic leukaemia
     Dosage: 100 MG, BID, DAYS 1 TO 14
     Route: 048
     Dates: start: 20200131
  3. CYCLOPHOSPHAMIDE [Suspect]
     Active Substance: CYCLOPHOSPHAMIDE
     Indication: Acute lymphocytic leukaemia
     Dosage: 2200 MG
     Route: 042
     Dates: start: 20200131, end: 20200306
  4. CYTARABINE [Suspect]
     Active Substance: CYTARABINE
     Indication: Acute lymphocytic leukaemia
     Dosage: 160 MG
     Route: 042
     Dates: start: 20200131, end: 20200323
  5. MERCAPTOPURINE [Suspect]
     Active Substance: MERCAPTOPURINE
     Indication: Acute lymphocytic leukaemia
     Dosage: 50 MG, MONDAY TO SATURDAY, 75 MG ON SUNDAY, FOR 14 DAYS
     Route: 048
     Dates: start: 20200203
  6. METHOTREXATE SODIUM [Suspect]
     Active Substance: METHOTREXATE SODIUM
     Indication: Acute lymphocytic leukaemia
     Dosage: 15 MG
     Route: 037
     Dates: start: 20200131, end: 20200417
  7. METHOTREXATE SODIUM [Suspect]
     Active Substance: METHOTREXATE SODIUM
     Dosage: 10000 MG, ONE DOSE
     Route: 042
     Dates: start: 20200417, end: 20200417
  8. VINCRISTINE SULFATE [Suspect]
     Active Substance: VINCRISTINE SULFATE
     Indication: Acute lymphocytic leukaemia
     Dosage: 2 MG
     Route: 042
     Dates: start: 20200213
  9. TN UNSPECIFIED [Concomitant]
     Indication: Premedication
     Dosage: UNK
     Route: 065
     Dates: start: 20200213
  10. TN UNSPECIFIED [Concomitant]
     Indication: Premedication
     Dosage: UNK
     Route: 065
     Dates: start: 20200213, end: 20200214
  11. TN UNSPECIFIED [Concomitant]
     Indication: Premedication
     Dosage: UNK
     Route: 065
     Dates: start: 20200213, end: 20200214

REACTIONS (2)
  - Anaphylactic reaction [Recovered/Resolved]
  - Acute kidney injury [Recovered/Resolved]

NARRATIVE: CASE EVENT DATE: 20200213
